FAERS Safety Report 6088428-8 (Version None)
Quarter: 2009Q1

REPORT INFORMATION
  Report Type: 
  Country: None (occurrence: None)
  Receive Date: 20090218
  Receipt Date: 20090218
  Transmission Date: 20090719
  Serious: Yes (Other)
  Sender: FDA-Public Use
  Company Number: None

PATIENT
  Sex: Male
  Weight: 78.18 kg

DRUGS (13)
  1. NEXIUM [Suspect]
     Dosage: 40MG CAPSULE DR 40 MG QD ORAL
     Route: 048
     Dates: start: 20081024, end: 20090217
  2. ALLOPURINOL [Concomitant]
  3. ARANESP [Concomitant]
  4. CALCITRIOL [Concomitant]
  5. ELOCON [Concomitant]
  6. FUROSEMIDE [Concomitant]
  7. NIFEDIPINE [Concomitant]
  8. PHOSLO [Concomitant]
  9. PREDNISONE [Concomitant]
  10. SIMVASTATIN [Concomitant]
  11. TOPROL-XL [Concomitant]
  12. WARFARIN SODIUM [Concomitant]
  13. WARFARIN SODIUM [Concomitant]

REACTIONS (1)
  - NEPHROPATHY TOXIC [None]
